FAERS Safety Report 20138182 (Version 2)
Quarter: 2022Q4

REPORT INFORMATION
  Report Type: Report from Study
  Country: CA (occurrence: CA)
  Receive Date: 20211202
  Receipt Date: 20221115
  Transmission Date: 20230113
  Serious: Yes (Other)
  Sender: FDA-Public Use
  Company Number: CA-BAUSCH-BL-2021-025550

PATIENT
  Age: 81 Year
  Sex: Female

DRUGS (3)
  1. SILIQ [Suspect]
     Active Substance: BRODALUMAB
     Indication: Psoriasis
     Dosage: 210MG/1.5 ML, WEEK 0, WEEK 1 AND WEEK 2
     Route: 058
     Dates: start: 20210617, end: 20210630
  2. SILIQ [Suspect]
     Active Substance: BRODALUMAB
     Dosage: 210MG/1.5 ML
     Route: 058
     Dates: start: 2021
  3. COVID-19 VACCINE [Concomitant]
     Indication: COVID-19 prophylaxis
     Dates: start: 202107

REACTIONS (8)
  - Cataract [Unknown]
  - Alopecia [Unknown]
  - Psoriasis [Unknown]
  - Symptom recurrence [Unknown]
  - Cystitis [Unknown]
  - Nasopharyngitis [Unknown]
  - Bronchitis [Unknown]
  - Intentional dose omission [Unknown]

NARRATIVE: CASE EVENT DATE: 20210101
